FAERS Safety Report 8180480-9 (Version None)
Quarter: 2012Q1

REPORT INFORMATION
  Report Type: 
  Country: None (occurrence: None)
  Receive Date: 20120302
  Receipt Date: 20120222
  Transmission Date: 20120608
  Serious: Yes (Other)
  Sender: FDA-Public Use
  Company Number: US-ABBOTT-12P-163-0907474-01

PATIENT
  Sex: Female
  Weight: 65.376 kg

DRUGS (4)
  1. HUMIRA [Suspect]
     Indication: CROHN'S DISEASE
     Route: 058
     Dates: start: 20090609
  2. HUMIRA [Concomitant]
     Indication: CROHN'S DISEASE
     Dosage: INDUCTION
     Route: 058
     Dates: start: 20080910, end: 20080910
  3. HUMIRA [Concomitant]
     Dosage: MAINTENENCE
     Route: 058
  4. HUMIRA [Concomitant]
     Dosage: WEEK 2
     Route: 058

REACTIONS (1)
  - ABORTION SPONTANEOUS [None]
